FAERS Safety Report 8339744 (Version 5)
Quarter: 2013Q1

REPORT INFORMATION
  Report Type: Spontaneous
  Country: CA (occurrence: None)
  Receive Date: 20120109
  Receipt Date: 20121105
  Transmission Date: 20140127
  Serious: Yes (Hospitalization, Other)
  Sender: FDA-Public Use
  Company Number: ADR-2011-11260

PATIENT
  Sex: Male

DRUGS (1)
  1. LIORESAL [Suspect]
     Indication: MUSCLE SPASTICITY
     Dosage: 774.5 MCG/DAY

REACTIONS (19)
  - Muscle spasticity [None]
  - Autonomic dysreflexia [None]
  - Condition aggravated [None]
  - Hypotonia [None]
  - Abdominal rigidity [None]
  - Insomnia [None]
  - Drug ineffective [None]
  - Body temperature increased [None]
  - Convulsion [None]
  - Hypertension [None]
  - Consciousness fluctuating [None]
  - Device breakage [None]
  - Medical device complication [None]
  - Overdose [None]
  - Dialysis [None]
  - Renal failure [None]
  - Self-medication [None]
  - Hypersomnia [None]
  - Contusion [None]
